FAERS Safety Report 15906829 (Version 1)
Quarter: 2019Q1

REPORT INFORMATION
  Report Type: Spontaneous
  Country: JP (occurrence: JP)
  Receive Date: 20190204
  Receipt Date: 20190204
  Transmission Date: 20190417
  Serious: Yes (Other)
  Sender: FDA-Public Use
  Company Number: JP-BAYER-2019-019622

PATIENT
  Age: 23 Year
  Sex: Female

DRUGS (1)
  1. BAYASPIRIN 100 MG [Suspect]
     Active Substance: ASPIRIN
     Route: 048

REACTIONS (4)
  - Dizziness [None]
  - Nausea [None]
  - Hemianaesthesia [None]
  - Diplopia [None]

NARRATIVE: CASE EVENT DATE: 20140901
